FAERS Safety Report 17016222 (Version 1)
Quarter: 2019Q4

REPORT INFORMATION
  Report Type: Spontaneous
  Country: US (occurrence: US)
  Receive Date: 20191109
  Receipt Date: 20191109
  Transmission Date: 20200122
  Serious: Yes (Disabling)
  Sender: FDA-Public Use
  Company Number: None

PATIENT
  Age: 43 Year
  Sex: Female
  Weight: 56.25 kg

DRUGS (1)
  1. ALPRAZOLAM 0.5 MG LOT# 0378-4003-05 [Suspect]
     Active Substance: ALPRAZOLAM
     Indication: ANXIETY
     Dosage: ?          QUANTITY:1 TABLET(S);?
     Route: 048
     Dates: start: 20191101, end: 20191109

REACTIONS (3)
  - Recalled product administered [None]
  - Product contamination physical [None]
  - Drug ineffective [None]

NARRATIVE: CASE EVENT DATE: 20191101
